FAERS Safety Report 9437992 (Version 1)
Quarter: 2013Q3

REPORT INFORMATION
  Report Type: Spontaneous
  Country: US (occurrence: US)
  Receive Date: 20130802
  Receipt Date: 20130802
  Transmission Date: 20140515
  Serious: No
  Sender: FDA-Public Use
  Company Number: US-BRISTOL-MYERS SQUIBB COMPANY-18817338

PATIENT
  Age: 72 Year
  Sex: Female

DRUGS (1)
  1. COUMADIN TABS [Suspect]
     Dosage: USES BOTH 1 AND 5MG, DISPENSED 30 TABS FROM 100 COUNT BOTTLE
     Dates: start: 20130124

REACTIONS (1)
  - No therapeutic response [Unknown]
